FAERS Safety Report 24700537 (Version 1)
Quarter: 2024Q4

REPORT INFORMATION
  Report Type: Spontaneous
  Country: US (occurrence: US)
  Receive Date: 20241205
  Receipt Date: 20241205
  Transmission Date: 20250115
  Serious: Yes (Other)
  Sender: AMGEN
  Company Number: US-AMGEN-USASP2024235887

PATIENT

DRUGS (1)
  1. RITUXIMAB [Suspect]
     Active Substance: RITUXIMAB
     Indication: Myelin oligodendrocyte glycoprotein antibody-associated disease
     Dosage: UNK
     Route: 065

REACTIONS (8)
  - Acute disseminated encephalomyelitis [Unknown]
  - Myelitis [Unknown]
  - Encephalitis [Unknown]
  - Cerebral disorder [Unknown]
  - Seizure [Unknown]
  - Optic neuritis [Unknown]
  - Drug effective for unapproved indication [Unknown]
  - Off label use [Unknown]
